FAERS Safety Report 25996937 (Version 1)
Quarter: 2025Q4

REPORT INFORMATION
  Report Type: Report from Study
  Country: EU (occurrence: EU)
  Receive Date: 20251104
  Receipt Date: 20251104
  Transmission Date: 20260118
  Serious: Yes (Other)
  Sender: NOVARTIS
  Company Number: EU-002147023-NVSC2025PL168282

PATIENT
  Sex: Male

DRUGS (2)
  1. TASIGNA [Suspect]
     Active Substance: NILOTINIB
     Indication: Chronic myeloid leukaemia
     Dosage: 600 MG, BID (STRENGTH: 150MG)
     Route: 065
     Dates: start: 20230921
  2. TASIGNA [Suspect]
     Active Substance: NILOTINIB
     Dosage: 300 MG, BID (STRENGTH: 150MG) (4 X 150 MG (300 MG +300 MG))
     Route: 065

REACTIONS (1)
  - Acute coronary syndrome [Unknown]
